FAERS Safety Report 17251950 (Version 1)
Quarter: 2019Q4

REPORT INFORMATION
  Report Type: Spontaneous
  Country: US (occurrence: US)
  Receive Date: 20191214
  Receipt Date: 20191214
  Transmission Date: 20200122
  Serious: Yes (Hospitalization)
  Sender: FDA-Public Use
  Company Number: None

PATIENT
  Age: 48 Year
  Sex: Female
  Weight: 94.5 kg

DRUGS (1)
  1. CISPLATIN. [Suspect]
     Active Substance: CISPLATIN
     Dates: end: 20191029

REACTIONS (5)
  - Pyelonephritis [None]
  - White blood cell count decreased [None]
  - Haemoglobin decreased [None]
  - Tachycardia [None]
  - Hypotension [None]

NARRATIVE: CASE EVENT DATE: 20191114
